FAERS Safety Report 6156975-6 (Version None)
Quarter: 2009Q2

REPORT INFORMATION
  Report Type: 
  Country: None (occurrence: None)
  Receive Date: 20090416
  Receipt Date: 20090407
  Transmission Date: 20091009
  Serious: Yes (Other)
  Sender: FDA-Public Use
  Company Number: JP-ASTRAZENECA-2009SE01477

PATIENT
  Age: 70 Year
  Sex: Female

DRUGS (3)
  1. AMIAS 4MG TABLETS [Suspect]
     Indication: HYPERTENSION
     Route: 048
     Dates: start: 20090312
  2. LOSARTAN POTASSIUM [Concomitant]
     Indication: HYPERTENSION
     Route: 048
     Dates: end: 20090310
  3. SIMVASTATIN [Concomitant]
     Route: 048

REACTIONS (2)
  - SINUS TACHYCARDIA [None]
  - VENTRICULAR EXTRASYSTOLES [None]
